FAERS Safety Report 4809590-8 (Version None)
Quarter: 2005Q4

REPORT INFORMATION
  Report Type: 
  Country: None (occurrence: None)
  Receive Date: 20051021
  Receipt Date: 20051005
  Transmission Date: 20060501
  Serious: Yes (Other)
  Sender: FDA-Public Use
  Company Number: 2005-DE-04091GD

PATIENT
  Age: 57 Year
  Sex: Male

DRUGS (5)
  1. ORAMORPH SR [Suspect]
     Indication: AGITATION
     Dosage: 6 MG/HOUR (NR); IV
     Route: 042
  2. MIDAZOLAM HCL [Suspect]
     Indication: AGITATION
     Dosage: 6 MG/HOUR (NR); IV
     Route: 030
  3. HALOPERIDOL [Suspect]
     Indication: AGITATION
     Dosage: 60 MG (NR, EVERY 4 HOURS); IV
     Route: 042
  4. METOPROLOL TARTRATE [Suspect]
     Indication: AGITATION
     Dosage: 30 MG (NR, EVERY 4 HOURS); IV
     Route: 042
  5. VANCOMYCIN [Concomitant]

REACTIONS (15)
  - ALANINE AMINOTRANSFERASE INCREASED [None]
  - ALCOHOL WITHDRAWAL SYNDROME [None]
  - BLOOD ALBUMIN DECREASED [None]
  - BLOOD ALKALINE PHOSPHATASE INCREASED [None]
  - BLOOD BILIRUBIN INCREASED [None]
  - BODY TEMPERATURE INCREASED [None]
  - CONSCIOUSNESS FLUCTUATING [None]
  - DELIRIUM [None]
  - DRUG INEFFECTIVE [None]
  - DYSTONIA [None]
  - EXTRAPYRAMIDAL DISORDER [None]
  - GAMMA-GLUTAMYLTRANSFERASE INCREASED [None]
  - HYPERHIDROSIS [None]
  - TREMOR [None]
  - UNRESPONSIVE TO VERBAL STIMULI [None]
